FAERS Safety Report 9039240 (Version 1)
Quarter: 2013Q1

REPORT INFORMATION
  Report Type: Spontaneous
  Country: US (occurrence: None)
  Receive Date: 20130123
  Receipt Date: 20130123
  Transmission Date: 20140127
  Serious: Yes (Other)
  Sender: FDA-Public Use
  Company Number: None

PATIENT
  Age: 82 Year
  Sex: Female
  Weight: 102 kg

DRUGS (24)
  1. SEROQUEL [Suspect]
     Indication: DELIRIUM
     Dates: start: 20121029, end: 20120905
  2. SEROQUEL [Suspect]
     Indication: HALLUCINATION
     Dates: start: 20121029, end: 20120905
  3. NEURONTIN [Concomitant]
  4. LASIX [Concomitant]
  5. MINOCYCLINE [Concomitant]
  6. ZOLOFT [Concomitant]
  7. PREDNISONE [Concomitant]
  8. HYDROCHLOROTHIAZIDE [Concomitant]
  9. ALBUTEROL [Concomitant]
  10. PRILOSEC [Concomitant]
  11. FLUCONAZOLE [Concomitant]
  12. PREDNISONE [Concomitant]
  13. PRN BOWEL MEDS. [Concomitant]
  14. DULCOLAX SUPPOSITORY [Concomitant]
  15. FLEET ENEMA AND MAALOX [Concomitant]
  16. FLUCONAZOLE [Concomitant]
  17. FUROSEMIDE [Concomitant]
  18. GABAPENTIN [Concomitant]
  19. HYDROCHLOROTHIAZIDE [Concomitant]
  20. MINOCYCLINE [Concomitant]
  21. OMEPRAZOLE [Concomitant]
  22. PREDNISONE [Concomitant]
  23. SERTRALINE [Concomitant]
  24. NORCO [Concomitant]

REACTIONS (3)
  - Tremor [None]
  - Tardive dyskinesia [None]
  - Extrapyramidal disorder [None]
